FAERS Safety Report 5056508-1 (Version None)
Quarter: 2006Q2

REPORT INFORMATION
  Report Type: 
  Country: None (occurrence: None)
  Receive Date: 20060616
  Receipt Date: 20060508
  Transmission Date: 20061013
  Serious: No
  Sender: FDA-Public Use
  Company Number: 2006US001068

PATIENT
  Age: 87 Year
  Sex: Female

DRUGS (1)
  1. VESICARE [Suspect]
     Indication: URINARY INCONTINENCE
     Dosage: 5 MG,UID/QD, ORAL
     Route: 048
     Dates: start: 20060430, end: 20060505

REACTIONS (3)
  - BALANCE DISORDER [None]
  - DIZZINESS [None]
  - DRY MOUTH [None]
